FAERS Safety Report 9999736 (Version 8)
Quarter: 2019Q3

REPORT INFORMATION
  Report Type: Report from Study
  Country: PL (occurrence: PL)
  Receive Date: 20140312
  Receipt Date: 20190721
  Transmission Date: 20191005
  Serious: Yes (Hospitalization)
  Sender: FDA-Public Use
  Company Number: PL-UCBSA-111585

PATIENT
  Age: 66 Year
  Sex: Female
  Weight: 83 kg

DRUGS (17)
  1. MILURIT [Concomitant]
     Active Substance: ALLOPURINOL
     Indication: HYPERTENSION
     Dosage: 100 MG, ONCE DAILY (QD)
     Dates: start: 2001
  2. KALDYUM [Concomitant]
     Active Substance: POTASSIUM CHLORIDE
     Indication: MINERAL SUPPLEMENTATION
     Dosage: 600 MG, 3X/DAY (TID)
     Dates: start: 20110719
  3. PRESLONG [Concomitant]
     Indication: HYPERTENSION
     Dosage: 5 MG, ONCE DAILY (QD)
     Dates: start: 2011
  4. TORAMIDE [Concomitant]
     Indication: HYPERTENSION
     Dosage: 5 MG, 2X/DAY (BID)
  5. KALIPOZ [Concomitant]
     Active Substance: POTASSIUM CHLORIDE
     Indication: PROPHYLAXIS
     Dosage: 391 MG, 2X/DAY (BID)
  6. CERTOLIZUMAB PEGOL VS PLACEBO [Suspect]
     Active Substance: CERTOLIZUMAB PEGOL
     Indication: PSORIATIC ARTHROPATHY
     Dosage: 200 MG, EV 2 WEEKS(QOW)
     Route: 058
     Dates: start: 20110328, end: 20131217
  7. BETAHISTINE DIHYDROCHLORIDE [Concomitant]
     Active Substance: BETAHISTINE
     Dosage: 16 MG, 2X/DAY (BID)
     Dates: start: 20130610, end: 20131016
  8. VASILIP [Concomitant]
     Active Substance: SIMVASTATIN
     Indication: HYPERCHOLESTEROLAEMIA
     Dosage: 20 MG, ONCE DAILY (QD)
     Dates: start: 2008
  9. DRIPTANE [Concomitant]
     Active Substance: OXYBUTYNIN
     Indication: URINARY INCONTINENCE
     Dosage: 5 MG, ONCE DAILY (QD)
     Dates: start: 2008
  10. XARTAN [Concomitant]
     Active Substance: LOSARTAN POTASSIUM
     Indication: HYPERTENSION
     Dosage: 50 MG, 2X/DAY (BID)
  11. HEPATIL [Concomitant]
     Indication: GASTRITIS
     Dosage: 300 MG, 3X/DAY (TID)
     Dates: start: 2010
  12. FAMOGAST [Concomitant]
     Indication: GASTRITIS
     Dosage: 40 MG, ONCE DAILY (QD)
     Dates: start: 20090807
  13. METYPRED [Concomitant]
     Active Substance: METHYLPREDNISOLONE
     Indication: PSORIATIC ARTHROPATHY
     Dosage: 4 MG, ONCE DAILY (QD)
     Dates: start: 20100514
  14. BETAHISTINE DIHYDROCHLORIDE [Concomitant]
     Active Substance: BETAHISTINE
     Indication: DIZZINESS
     Dosage: 24 MG, 2X/DAY (BID)
     Dates: start: 20131017
  15. CONTIX [Concomitant]
     Indication: GASTRITIS
     Dosage: 20 MG, ONCE DAILY (QD)
     Dates: start: 20090302
  16. FRAXIPARINE [Concomitant]
     Active Substance: NADROPARIN CALCIUM
     Indication: EMBOLISM VENOUS
     Dosage: .3 ?L, 2X/DAY (BID)
  17. METHOTREXATE. [Concomitant]
     Active Substance: METHOTREXATE
     Dosage: UNK
     Dates: start: 201005

REACTIONS (1)
  - Ovarian cancer [Not Recovered/Not Resolved]

NARRATIVE: CASE EVENT DATE: 20131230
